FAERS Safety Report 4420864-5 (Version None)
Quarter: 2004Q3

REPORT INFORMATION
  Report Type: 
  Country: None (occurrence: None)
  Receive Date: 20040809
  Receipt Date: 20040728
  Transmission Date: 20050211
  Serious: Yes (Other)
  Sender: FDA-Public Use
  Company Number: JP-JNJFOC-20040800647

PATIENT
  Sex: Male

DRUGS (2)
  1. DUROTEP [Suspect]
     Indication: CANCER PAIN
     Route: 062
     Dates: start: 20040617, end: 20040622
  2. DICLOFENAC SODIUM [Concomitant]
     Indication: CANCER PAIN
     Route: 054

REACTIONS (2)
  - ALANINE AMINOTRANSFERASE INCREASED [None]
  - ASPARTATE AMINOTRANSFERASE INCREASED [None]
